FAERS Safety Report 15599319 (Version 1)
Quarter: 2018Q4

REPORT INFORMATION
  Report Type: Spontaneous
  Country: TH (occurrence: TH)
  Receive Date: 20181108
  Receipt Date: 20181108
  Transmission Date: 20190205
  Serious: Yes (Hospitalization)
  Sender: FDA-Public Use
  Company Number: PHHY2018TH143107

PATIENT
  Age: 79 Year
  Sex: Female

DRUGS (3)
  1. ENTRESTO [Suspect]
     Active Substance: SACUBITRIL\VALSARTAN
     Indication: CARDIAC FAILURE
     Dosage: 12.5 MG, BID
     Route: 065
     Dates: start: 20180723
  2. ENTRESTO [Suspect]
     Active Substance: SACUBITRIL\VALSARTAN
     Dosage: 25 MG, BID
     Route: 065
     Dates: start: 20180809
  3. ENTRESTO [Suspect]
     Active Substance: SACUBITRIL\VALSARTAN
     Dosage: 12.5 MG, BID
     Route: 065
     Dates: start: 20180823

REACTIONS (5)
  - Discharge [Recovering/Resolving]
  - Wound [Unknown]
  - Oedema peripheral [Recovering/Resolving]
  - Incorrect dose administered [Unknown]
  - Pruritus [Unknown]

NARRATIVE: CASE EVENT DATE: 20180723
